FAERS Safety Report 8189200-5 (Version None)
Quarter: 2012Q1

REPORT INFORMATION
  Report Type: 
  Country: None (occurrence: None)
  Receive Date: 20120306
  Receipt Date: 20120306
  Transmission Date: 20120608
  Serious: Yes (Other)
  Sender: FDA-Public Use
  Company Number: None

PATIENT
  Age: 41 Year
  Sex: Female

DRUGS (1)
  1. SYEDA [Suspect]
     Indication: CONTRACEPTION
     Dosage: ONE TABLET ORALLY DAILY
     Route: 048

REACTIONS (3)
  - HEADACHE [None]
  - BREAST TENDERNESS [None]
  - HAEMORRHAGE [None]
